FAERS Safety Report 8974309 (Version 1)
Quarter: 2012Q4

REPORT INFORMATION
  Report Type: Spontaneous
  Country: US (occurrence: None)
  Receive Date: 20121212
  Receipt Date: 20121212
  Transmission Date: 20130627
  Serious: Yes (Hospitalization)
  Sender: FDA-Public Use
  Company Number: PIR#CC400162399

PATIENT
  Age: 63 Year
  Sex: Female
  Weight: 83 kg

DRUGS (1)
  1. 6% HETASTARCH IN 0.9% NACL [Suspect]

REACTIONS (4)
  - Renal tubular necrosis [None]
  - Nephropathy toxic [None]
  - Tubulointerstitial nephritis [None]
  - Nephrotic syndrome [None]
